FAERS Safety Report 9609293 (Version 1)
Quarter: 2013Q4

REPORT INFORMATION
  Report Type: Spontaneous
  Country: US (occurrence: US)
  Receive Date: 20131009
  Receipt Date: 20131009
  Transmission Date: 20140711
  Serious: Yes (Other)
  Sender: FDA-Public Use
  Company Number: US-ROXANE LABORATORIES, INC.-2013-RO-01631RO

PATIENT
  Age: 51 Year
  Sex: Female

DRUGS (2)
  1. FLECAINIDE [Suspect]
     Indication: VENTRICULAR EXTRASYSTOLES
     Dosage: 200 MG
     Route: 048
  2. DIGOXIN [Concomitant]
     Indication: ATRIAL FIBRILLATION

REACTIONS (3)
  - Chest pain [Recovered/Resolved]
  - Drug ineffective [Recovered/Resolved]
  - Product quality issue [Unknown]
